FAERS Safety Report 5110100-9 (Version None)
Quarter: 2006Q3

REPORT INFORMATION
  Report Type: 
  Country: None (occurrence: None)
  Receive Date: 20060731
  Receipt Date: 20060627
  Transmission Date: 20061208
  Serious: No
  Sender: FDA-Public Use
  Company Number: 2006PV016555

PATIENT
  Age: 44 Year
  Sex: Female
  Weight: 81.6475 kg

DRUGS (5)
  1. BYETTA [Suspect]
     Indication: DIABETES MELLITUS NON-INSULIN-DEPENDENT
     Dosage: 5 MCG;BID;SC
     Route: 058
     Dates: start: 20060609, end: 20060614
  2. METFORMIN HCL [Concomitant]
  3. AMARYL [Concomitant]
  4. VYTORIN [Concomitant]
  5. PRILOSEC [Concomitant]

REACTIONS (3)
  - ASTHENIA [None]
  - BLOOD GLUCOSE INCREASED [None]
  - SOMNOLENCE [None]
